FAERS Safety Report 7351357-3 (Version None)
Quarter: 2011Q1

REPORT INFORMATION
  Report Type: 
  Country: None (occurrence: None)
  Receive Date: 20110314
  Receipt Date: 20110302
  Transmission Date: 20110831
  Serious: Yes (Hospitalization)
  Sender: FDA-Public Use
  Company Number: PHHY2011JP18243

PATIENT
  Age: 75 Year
  Sex: Female

DRUGS (3)
  1. DIOVAN [Suspect]
     Indication: HYPERTENSION
  2. PRAVASTATIN SODIUM [Concomitant]
  3. APRINDINE HYDROCHLORIDE [Concomitant]

REACTIONS (1)
  - CHOLESTASIS [None]
